FAERS Safety Report 16910755 (Version 2)
Quarter: 2019Q4

REPORT INFORMATION
  Report Type: Spontaneous
  Country: DE (occurrence: DE)
  Receive Date: 20191012
  Receipt Date: 20191101
  Transmission Date: 20200122
  Serious: Yes (Other)
  Sender: FDA-Public Use
  Company Number: DE-B.I. PHARMACEUTICALS,INC./RIDGEFIELD-2019-BI-106701

PATIENT
  Age: 67 Year
  Sex: Male

DRUGS (3)
  1. GILOTRIF [Suspect]
     Active Substance: AFATINIB
     Indication: ADENOCARCINOMA
     Route: 065
     Dates: start: 201508, end: 201603
  2. DOCETAXEL. [Suspect]
     Active Substance: DOCETAXEL
     Indication: ADENOCARCINOMA
     Route: 065
     Dates: start: 201607, end: 201701
  3. VARGATEF [Suspect]
     Active Substance: NINTEDANIB
     Indication: ADENOCARCINOMA
     Route: 065
     Dates: start: 201607, end: 201701

REACTIONS (2)
  - Malignant neoplasm progression [Unknown]
  - Malignant neoplasm progression [Unknown]

NARRATIVE: CASE EVENT DATE: 20160321
